FAERS Safety Report 7680361-0 (Version None)
Quarter: 2011Q3

REPORT INFORMATION
  Report Type: 
  Country: None (occurrence: None)
  Receive Date: 20110812
  Receipt Date: 20110804
  Transmission Date: 20111222
  Serious: Yes (Hospitalization)
  Sender: FDA-Public Use
  Company Number: FR-GLAXOSMITHKLINE-B0737111A

PATIENT
  Sex: Male

DRUGS (15)
  1. IKOREL [Suspect]
     Indication: PRODUCT USED FOR UNKNOWN INDICATION
     Dosage: 10MG IN THE MORNING
     Route: 048
  2. RAMIPRIL [Concomitant]
     Indication: HYPERTENSION
     Dosage: 1.25MG IN THE MORNING
     Route: 048
  3. CORDARONE [Concomitant]
     Dosage: 200MG SEE DOSAGE TEXT
     Route: 048
  4. FORLAX [Concomitant]
     Dosage: 20MG PER DAY
     Route: 048
  5. ALFUZOSIN HCL [Suspect]
     Indication: PRODUCT USED FOR UNKNOWN INDICATION
     Dosage: 10MG AT NIGHT
     Route: 048
  6. TRAMADOL HCL [Concomitant]
     Dosage: 100MG TWICE PER DAY
     Route: 048
  7. POTASSIUM CHLORIDE [Concomitant]
     Dosage: 600MG TWICE PER DAY
     Route: 048
  8. FERROUS SULFATE TAB [Concomitant]
     Dosage: 1UNIT TWICE PER DAY
     Route: 048
  9. PLAVIX [Suspect]
     Indication: PRODUCT USED FOR UNKNOWN INDICATION
     Dosage: 75MG IN THE MORNING
     Route: 048
  10. ASPIRIN [Suspect]
     Indication: CARDIOVASCULAR EVENT PROPHYLAXIS
     Dosage: 75MG IN THE MORNING
     Route: 048
     Dates: start: 20110301
  11. PROCORALAN [Concomitant]
     Dosage: 5MG PER DAY
     Route: 048
     Dates: start: 20110411, end: 20110511
  12. LASIX [Concomitant]
     Dosage: 40MG TWICE PER DAY
     Route: 048
  13. NEXIUM [Concomitant]
     Dosage: 20MG AT NIGHT
     Route: 048
  14. PAROXETINE HCL [Suspect]
     Indication: PRODUCT USED FOR UNKNOWN INDICATION
     Dosage: 20MG IN THE MORNING
     Route: 048
  15. ACETAMINOPHEN [Concomitant]
     Dosage: 1G THREE TIMES PER DAY
     Route: 048

REACTIONS (4)
  - MELAENA [None]
  - OESOPHAGITIS ULCERATIVE [None]
  - GASTRIC ULCER [None]
  - ANAEMIA [None]
